FAERS Safety Report 5968778-3 (Version None)
Quarter: 2008Q4

REPORT INFORMATION
  Report Type: 
  Country: None (occurrence: None)
  Receive Date: 20081125
  Receipt Date: 20081125
  Transmission Date: 20090506
  Serious: Yes (Life-Threatening, Hospitalization)
  Sender: FDA-Public Use
  Company Number: None

PATIENT
  Age: 23 Year
  Sex: Female
  Weight: 114.3065 kg

DRUGS (1)
  1. NUVARING [Suspect]
     Indication: CONTRACEPTION
     Dosage: MONTHLY VAG  (DURATION: OVER 2 YEARS)
     Route: 067
     Dates: start: 20060101, end: 20081121

REACTIONS (2)
  - LUNG DISORDER [None]
  - PULMONARY THROMBOSIS [None]
